FAERS Safety Report 17800238 (Version 1)
Quarter: 2020Q2

REPORT INFORMATION
  Report Type: Spontaneous
  Country: US (occurrence: US)
  Receive Date: 20200518
  Receipt Date: 20200518
  Transmission Date: 20200714
  Serious: No
  Sender: FDA-Public Use
  Company Number: US-ABBVIE-20K-163-3314961-00

PATIENT
  Sex: Female
  Weight: 44.49 kg

DRUGS (2)
  1. MAXIDEX [Concomitant]
     Active Substance: DEXAMETHASONE
     Indication: MENIERE^S DISEASE
  2. RINVOQ [Suspect]
     Active Substance: UPADACITINIB
     Indication: RHEUMATOID ARTHRITIS
     Route: 048
     Dates: start: 202001

REACTIONS (5)
  - Pain in extremity [Recovering/Resolving]
  - Sinus congestion [Recovering/Resolving]
  - Drug ineffective [Recovering/Resolving]
  - Nervousness [Unknown]
  - Malaise [Unknown]

NARRATIVE: CASE EVENT DATE: 2020
